FAERS Safety Report 10602077 (Version 2)
Quarter: 2014Q4

REPORT INFORMATION
  Report Type: Spontaneous
  Country: US (occurrence: US)
  Receive Date: 20141124
  Receipt Date: 20141201
  Transmission Date: 20150529
  Serious: Yes (Other)
  Sender: FDA-Public Use
  Company Number: US-SA-2014SA158793

PATIENT
  Age: 53 Year
  Sex: Female

DRUGS (2)
  1. SOLOSTAR [Concomitant]
     Active Substance: DEVICE
     Indication: DEVICE THERAPY
  2. LANTUS SOLOSTAR [Suspect]
     Active Substance: INSULIN GLARGINE
     Indication: DIABETES MELLITUS
     Dosage: DOSE:16 UNIT(S)
     Route: 065

REACTIONS (11)
  - Limb injury [Unknown]
  - Eye disorder [Unknown]
  - Spinal cord injury [Unknown]
  - Drug administration error [Unknown]
  - Fall [Unknown]
  - Ankle fracture [Unknown]
  - Contusion [Unknown]
  - Diabetic retinopathy [Unknown]
  - Rotator cuff syndrome [Unknown]
  - Blood glucose decreased [Unknown]
  - Intervertebral disc protrusion [Unknown]

NARRATIVE: CASE EVENT DATE: 201403
